FAERS Safety Report 9356469 (Version 2)
Quarter: 2013Q2

REPORT INFORMATION
  Report Type: Spontaneous
  Country: GB (occurrence: GB)
  Receive Date: 20130619
  Receipt Date: 20130619
  Transmission Date: 20140414
  Serious: Yes (Life-Threatening, Hospitalization, Other)
  Sender: FDA-Public Use
  Company Number: GB-JP/970205/712

PATIENT
  Age: 24 Hour
  Sex: Male

DRUGS (3)
  1. TEMGESIC INJECTION [Suspect]
     Indication: DRUG DEPENDENCE
     Dosage: MOTHER RECEIVED 0.6MG SUBCUTANEOUS TWICE DAILY
     Route: 064
     Dates: end: 1982
  2. TUINAL [Suspect]
     Indication: PRODUCT USED FOR UNKNOWN INDICATION
     Dosage: MOTHER^S DOSE WAS 200 MG
     Route: 064
  3. NICOTINE [Suspect]
     Indication: PRODUCT USED FOR UNKNOWN INDICATION
     Route: 064

REACTIONS (5)
  - Foetal exposure during pregnancy [Recovered/Resolved]
  - Respiratory disorder neonatal [Recovered/Resolved]
  - Laryngeal dysplasia [Recovered/Resolved]
  - Synovial cyst [Recovered/Resolved]
  - Maternal drugs affecting foetus [None]
